FAERS Safety Report 24584957 (Version 2)
Quarter: 2024Q4

REPORT INFORMATION
  Report Type: Other
  Country: GB (occurrence: GB)
  Receive Date: 20241106
  Receipt Date: 20241202
  Transmission Date: 20250114
  Serious: Yes (Other)
  Sender: LUPIN
  Company Number: GB-MHRA-EMIS-11607-ed82ac41-537f-43e3-a966-879f2f6a0de1

PATIENT

DRUGS (3)
  1. SERTRALINE [Suspect]
     Active Substance: SERTRALINE HYDROCHLORIDE
     Indication: Product used for unknown indication
     Dosage: 1 DOSAGE FORM, QD, ONE TO BE TAKEN EACH DAY
     Route: 065
     Dates: start: 20241009, end: 20241024
  2. SERTRALINE [Concomitant]
     Active Substance: SERTRALINE HYDROCHLORIDE
     Indication: Product used for unknown indication
     Dosage: 1 DOSAGE FORM, QD, ONE TO BE TAKEN EACH DAY
     Route: 065
     Dates: start: 20241009, end: 20241024
  3. FLUOXETINE [Concomitant]
     Active Substance: FLUOXETINE HYDROCHLORIDE
     Indication: Product used for unknown indication
     Dosage: UNK UNK, QD,1/2 A TABLET EVERY DAY
     Route: 065
     Dates: start: 20241024

REACTIONS (3)
  - Hypertonia [Recovered/Resolved]
  - Trismus [Unknown]
  - Muscle spasms [Unknown]

NARRATIVE: CASE EVENT DATE: 20241010
